FAERS Safety Report 21235656 (Version 1)
Quarter: 2022Q3

REPORT INFORMATION
  Report Type: Spontaneous
  Country: US (occurrence: US)
  Receive Date: 20220821
  Receipt Date: 20220821
  Transmission Date: 20221027
  Serious: No
  Sender: FDA-Public Use
  Company Number: US-SA-SAC20220818000431

PATIENT
  Sex: Male
  Weight: 24 kg

DRUGS (1)
  1. DUPIXENT [Suspect]
     Active Substance: DUPILUMAB
     Dosage: 100 MG, FREQUENCY: OTHER
     Route: 058

REACTIONS (2)
  - Fatigue [Unknown]
  - Product use issue [Unknown]
